FAERS Safety Report 12904237 (Version 1)
Quarter: 2016Q4

REPORT INFORMATION
  Report Type: Spontaneous
  Country: CA (occurrence: CA)
  Receive Date: 20161102
  Receipt Date: 20161102
  Transmission Date: 20170207
  Serious: Yes (Hospitalization)
  Sender: FDA-Public Use
  Company Number: CA-JNJFOC-20161024772

PATIENT
  Age: 74 Year
  Sex: Male

DRUGS (2)
  1. CANAGLIFLOZIN [Suspect]
     Active Substance: CANAGLIFLOZIN
     Indication: TYPE 2 DIABETES MELLITUS
     Dosage: START DATE 8 MONTHS BEFORE PANCREATICODUODENECTOMY??STOP DATE ONE DAY BEFORE PANCREATICODUODENECTOMY
     Route: 065
  2. INSULIN [Concomitant]
     Active Substance: INSULIN NOS
     Indication: DIABETES MELLITUS MANAGEMENT
     Dosage: DOSE WAS VIA SLIDING SCALE
     Route: 065

REACTIONS (1)
  - Ketoacidosis [Unknown]
